FAERS Safety Report 4268634-5 (Version None)
Quarter: 2004Q1

REPORT INFORMATION
  Report Type: 
  Country: None (occurrence: None)
  Receive Date: 20040108
  Receipt Date: 20031229
  Transmission Date: 20041129
  Serious: Yes (Life-Threatening, Hospitalization)
  Sender: FDA-Public Use
  Company Number: 2003127196

PATIENT
  Age: 69 Year
  Sex: Male

DRUGS (3)
  1. TAHOR (ATORVASTATIN) [Suspect]
     Dosage: ORAL
     Route: 048
  2. ATRACURIUM BESYLATE [Suspect]
     Dosage: 50 MG, INTRAVENOUS
     Route: 042
     Dates: start: 20031028, end: 20031028
  3. SERENOA REPENS (SERENOA REPENS) [Suspect]
     Dosage: ORAL
     Route: 048

REACTIONS (8)
  - ANAESTHETIC COMPLICATION NEUROLOGICAL [None]
  - BRONCHOSPASM [None]
  - DRUG INEFFECTIVE [None]
  - DRUG INTERACTION [None]
  - JAW DISORDER [None]
  - JOINT STIFFNESS [None]
  - NUCHAL RIGIDITY [None]
  - RESPIRATORY ARREST [None]
